FAERS Safety Report 8581829-5 (Version None)
Quarter: 2012Q3

REPORT INFORMATION
  Report Type: 
  Country: None (occurrence: None)
  Receive Date: 20120809
  Receipt Date: 20120731
  Transmission Date: 20120928
  Serious: Yes (Other)
  Sender: FDA-Public Use
  Company Number: US-ASTRAZENECA-2012SE37669

PATIENT
  Age: 55 Year
  Sex: Female

DRUGS (1)
  1. NEXIUM [Suspect]
     Route: 048

REACTIONS (5)
  - DYSPEPSIA [None]
  - DRUG DOSE OMISSION [None]
  - GASTROINTESTINAL OBSTRUCTION [None]
  - DRUG PRESCRIBING ERROR [None]
  - APHAGIA [None]
